FAERS Safety Report 10993192 (Version 2)
Quarter: 2015Q2

REPORT INFORMATION
  Report Type: Spontaneous
  Country: US (occurrence: US)
  Receive Date: 20150407
  Receipt Date: 20150414
  Transmission Date: 20150821
  Serious: No
  Sender: FDA-Public Use
  Company Number: US-ASTRAZENECA-2015SE32067

PATIENT
  Sex: Female

DRUGS (1)
  1. NEXIUM 24HR [Suspect]
     Active Substance: ESOMEPRAZOLE MAGNESIUM
     Indication: GASTROOESOPHAGEAL REFLUX DISEASE
     Route: 048
     Dates: start: 20150324, end: 20150324

REACTIONS (4)
  - Dry throat [Unknown]
  - Dysphagia [Unknown]
  - Intentional product misuse [Unknown]
  - Dry mouth [Unknown]

NARRATIVE: CASE EVENT DATE: 201503
